FAERS Safety Report 13064369 (Version 1)
Quarter: 2016Q4

REPORT INFORMATION
  Report Type: Spontaneous
  Country: BE (occurrence: BE)
  Receive Date: 20161227
  Receipt Date: 20161227
  Transmission Date: 20170207
  Serious: Yes (Other)
  Sender: FDA-Public Use
  Company Number: BE-BAYER-2016-239227

PATIENT

DRUGS (1)
  1. BETAFERON [Suspect]
     Active Substance: INTERFERON BETA-1B
     Dosage: UNK

REACTIONS (1)
  - Nuclear magnetic resonance imaging abnormal [None]
